FAERS Safety Report 6260147-4 (Version None)
Quarter: 2009Q3

REPORT INFORMATION
  Report Type: 
  Country: None (occurrence: None)
  Receive Date: 20090708
  Receipt Date: 20090629
  Transmission Date: 20100115
  Serious: Yes (Other)
  Sender: FDA-Public Use
  Company Number: A0789741A

PATIENT
  Age: 40 Year
  Sex: Female
  Weight: 73.2 kg

DRUGS (8)
  1. PROMACTA [Suspect]
     Indication: IDIOPATHIC THROMBOCYTOPENIC PURPURA
     Dosage: 50MG PER DAY
     Route: 048
     Dates: start: 20090507, end: 20090529
  2. ATENOLOL [Concomitant]
  3. COUMADIN [Concomitant]
  4. TERAZOSIN HCL [Concomitant]
  5. WELLBUTRIN [Concomitant]
  6. BENICAR [Concomitant]
  7. THYROID MEDICATION [Concomitant]
  8. TOPAMAX [Concomitant]

REACTIONS (2)
  - DRUG HYPERSENSITIVITY [None]
  - URTICARIA [None]
